FAERS Safety Report 11128454 (Version 2)
Quarter: 2015Q2

REPORT INFORMATION
  Report Type: Spontaneous
  Country: LT (occurrence: None)
  Receive Date: 20150519
  Receipt Date: 20150527
  Transmission Date: 20150821
  Serious: Yes (Life-Threatening, Hospitalization)
  Sender: FDA-Public Use
  Company Number: 2015FE01572

PATIENT
  Age: 8 Year
  Sex: Male
  Weight: 14 kg

DRUGS (1)
  1. PICOPREP [Suspect]
     Active Substance: CITRIC ACID MONOHYDRATE\MAGNESIUM OXIDE\SODIUM PICOSULFATE
     Indication: LAXATIVE SUPPORTIVE CARE
     Dosage: 15.5 G, DAILY, ORAL
     Route: 048
     Dates: start: 20150131, end: 20150131

REACTIONS (20)
  - Endotoxic shock [None]
  - Renal failure [None]
  - Diarrhoea [None]
  - Product use issue [None]
  - Heart rate increased [None]
  - Rectal haemorrhage [None]
  - Flatulence [None]
  - Vomiting [None]
  - Cardiac failure [None]
  - Sepsis [None]
  - Intestinal obstruction [None]
  - Haemorrhagic anaemia [None]
  - Respiratory failure [None]
  - Gastrointestinal hypomotility [None]
  - Neuropathy peripheral [None]
  - Respiratory rate increased [None]
  - Blood pressure decreased [None]
  - Multi-organ failure [None]
  - Sluggishness [None]
  - Influenza [None]

NARRATIVE: CASE EVENT DATE: 20150131
